FAERS Safety Report 8271114-3 (Version None)
Quarter: 2012Q2

REPORT INFORMATION
  Report Type: 
  Country: None (occurrence: None)
  Receive Date: 20120410
  Receipt Date: 20120328
  Transmission Date: 20120825
  Serious: Yes (Other)
  Sender: FDA-Public Use
  Company Number: DE-FRI-1000029599

PATIENT
  Sex: Male
  Weight: 69 kg

DRUGS (3)
  1. ROFLUMILAST [Suspect]
     Indication: CHRONIC OBSTRUCTIVE PULMONARY DISEASE
     Route: 048
     Dates: start: 20110330, end: 20110929
  2. ROFLUMILAST [Suspect]
     Route: 048
  3. CEFIXIM [Concomitant]
     Indication: BRONCHITIS
     Dates: start: 20110422

REACTIONS (2)
  - BRONCHIAL HYPERREACTIVITY [None]
  - COUGH [None]
